FAERS Safety Report 7732334-7 (Version None)
Quarter: 2011Q3

REPORT INFORMATION
  Report Type: 
  Country: None (occurrence: None)
  Receive Date: 20110906
  Receipt Date: 20110824
  Transmission Date: 20111222
  Serious: No
  Sender: FDA-Public Use
  Company Number: US-AMGEN-USASP2011043440

PATIENT
  Age: 75 Year
  Sex: Male

DRUGS (11)
  1. AMLODIPINE [Concomitant]
  2. CLONIDINE [Concomitant]
  3. XGEVA [Suspect]
     Indication: PROSTATE CANCER
     Dosage: 120 MG, Q4WK
     Dates: start: 20110622
  4. NASACORT [Concomitant]
  5. SIMVASTATIN [Concomitant]
  6. VITAMIN D [Concomitant]
  7. CALCIUM CARBONATE [Concomitant]
  8. DIVALPROEX SODIUM [Concomitant]
  9. AGGRENOX [Concomitant]
  10. PREVACID [Concomitant]
  11. CYSTEINE [Concomitant]

REACTIONS (1)
  - MUSCLE TWITCHING [None]
